FAERS Safety Report 5622870-1 (Version None)
Quarter: 2008Q1

REPORT INFORMATION
  Report Type: 
  Country: None (occurrence: None)
  Receive Date: 20080207
  Receipt Date: 20080207
  Transmission Date: 20080703
  Serious: Yes (Other)
  Sender: FDA-Public Use
  Company Number: None

PATIENT
  Sex: Female
  Weight: 99.7913 kg

DRUGS (1)
  1. FENTANYL-100 [Suspect]
     Indication: BACK PAIN
     Dosage: 50-100MCG  Q72HOURS  SKIN
     Route: 062
     Dates: start: 20060517, end: 20080204

REACTIONS (4)
  - DIARRHOEA [None]
  - NAUSEA [None]
  - RASH [None]
  - VOMITING [None]
